FAERS Safety Report 5042510-2 (Version None)
Quarter: 2006Q2

REPORT INFORMATION
  Report Type: 
  Country: None (occurrence: None)
  Receive Date: 20060601
  Receipt Date: 20060328
  Transmission Date: 20061013
  Serious: No
  Sender: FDA-Public Use
  Company Number: 2006PV011033

PATIENT
  Age: 62 Year
  Sex: Male
  Weight: 143.3367 kg

DRUGS (3)
  1. BYETTA [Suspect]
     Indication: DIABETES MELLITUS NON-INSULIN-DEPENDENT
     Dosage: SEE IMAGE
     Route: 058
     Dates: start: 20051114, end: 20051213
  2. BYETTA [Suspect]
     Indication: DIABETES MELLITUS NON-INSULIN-DEPENDENT
     Dosage: SEE IMAGE
     Route: 058
     Dates: start: 20051214
  3. INSULIN 75/25 [Concomitant]

REACTIONS (4)
  - FAECES HARD [None]
  - PRURITUS [None]
  - RASH [None]
  - WEIGHT DECREASED [None]
